FAERS Safety Report 18359611 (Version 4)
Quarter: 2021Q3

REPORT INFORMATION
  Report Type: Report from Study
  Country: TW (occurrence: TW)
  Receive Date: 20201008
  Receipt Date: 20210830
  Transmission Date: 20211014
  Serious: Yes (Hospitalization)
  Sender: FDA-Public Use
  Company Number: TW-CLOVIS ONCOLOGY-CLO-2020-001812

PATIENT

DRUGS (5)
  1. RUCAPARIB [Suspect]
     Active Substance: RUCAPARIB
     Indication: OVARIAN CANCER
     Dosage: 600 MG, BID
     Route: 048
     Dates: start: 20200120
  2. RUCAPARIB [Suspect]
     Active Substance: RUCAPARIB
     Dosage: 200 MILLIGRAM, BID
     Route: 048
     Dates: start: 20201116
  3. RUCAPARIB [Suspect]
     Active Substance: RUCAPARIB
     Dosage: 300 MG, BID
     Route: 048
     Dates: end: 20200928
  4. NIVOLUMAB [Suspect]
     Active Substance: NIVOLUMAB
     Indication: OVARIAN CANCER
     Dosage: 480 MG, Q4W
     Route: 042
     Dates: start: 20200217
  5. NIVOLUMAB [Suspect]
     Active Substance: NIVOLUMAB
     Dosage: 480 MG, Q4W
     Route: 042
     Dates: end: 20200413

REACTIONS (1)
  - Pancytopenia [Recovered/Resolved]

NARRATIVE: CASE EVENT DATE: 20200928
